FAERS Safety Report 12211601 (Version 2)
Quarter: 2016Q1

REPORT INFORMATION
  Report Type: Report from Study
  Country: US (occurrence: US)
  Receive Date: 20160325
  Receipt Date: 20160330
  Transmission Date: 20160526
  Serious: Yes (Death, Hospitalization, Other)
  Sender: FDA-Public Use
  Company Number: US-ASTELLAS-2016US005884

PATIENT
  Age: 83 Year
  Sex: Male

DRUGS (17)
  1. MYRBETRIQ [Concomitant]
     Active Substance: MIRABEGRON
     Indication: PRODUCT USED FOR UNKNOWN INDICATION
     Route: 048
  2. RADIUM RA 223 DICHLORIDE [Concomitant]
     Active Substance: RADIUM RA-223 DICHLORIDE
     Indication: PRODUCT USED FOR UNKNOWN INDICATION
     Dosage: 1000 KBQ/ML UNKNOWN FREQ.
     Route: 042
  3. XOFIGO [Concomitant]
     Active Substance: RADIUM RA-223 DICHLORIDE
     Indication: PRODUCT USED FOR UNKNOWN INDICATION
     Dosage: UNK, UNKNOWN FREQ.
     Route: 065
     Dates: start: 20151116
  4. PROSTEON [Concomitant]
     Active Substance: MINERALS
     Indication: PRODUCT USED FOR UNKNOWN INDICATION
     Dosage: 02 DF, TWICE DAILY
     Route: 048
  5. DRONEDARONE [Concomitant]
     Active Substance: DRONEDARONE
     Indication: ATRIAL FIBRILLATION
     Dosage: UNK, UNKNOWN FREQ.
     Route: 065
  6. METHOTREXATE [Concomitant]
     Active Substance: METHOTREXATE
     Indication: PRODUCT USED FOR UNKNOWN INDICATION
     Route: 048
  7. VITAMIN B12 [Concomitant]
     Active Substance: CYANOCOBALAMIN
     Indication: PRODUCT USED FOR UNKNOWN INDICATION
     Route: 048
  8. ELIQUIS [Concomitant]
     Active Substance: APIXABAN
     Indication: ATRIAL FIBRILLATION
     Dosage: 05 MG, ONCE DAILY
     Route: 048
  9. EFFEXOR [Concomitant]
     Active Substance: VENLAFAXINE HYDROCHLORIDE
     Indication: PRODUCT USED FOR UNKNOWN INDICATION
     Dosage: 0.5 DF, ONCE DAILY
     Route: 048
  10. ENZALUTAMIDE [Suspect]
     Active Substance: ENZALUTAMIDE
     Indication: PROSTATE CANCER METASTATIC
     Route: 048
     Dates: start: 201506
  11. ELIGARD [Concomitant]
     Active Substance: LEUPROLIDE ACETATE
     Indication: PROSTATE CANCER
     Dosage: UNK, UNKNOWN FREQ.
     Route: 065
  12. ENZALUTAMIDE [Suspect]
     Active Substance: ENZALUTAMIDE
     Route: 048
     Dates: start: 20150814
  13. ULTRAM [Concomitant]
     Active Substance: TRAMADOL HYDROCHLORIDE
     Indication: PRODUCT USED FOR UNKNOWN INDICATION
     Route: 048
  14. ATIVAN [Concomitant]
     Active Substance: LORAZEPAM
     Indication: PRODUCT USED FOR UNKNOWN INDICATION
     Dosage: 0.5 MG, ONCE DAILY
     Route: 048
  15. LOPRESSOR [Concomitant]
     Active Substance: METOPROLOL TARTRATE
     Indication: PRODUCT USED FOR UNKNOWN INDICATION
     Route: 048
  16. MULTAQ [Concomitant]
     Active Substance: DRONEDARONE
     Indication: PRODUCT USED FOR UNKNOWN INDICATION
     Route: 048
  17. FOLVITE                            /00024201/ [Concomitant]
     Indication: PRODUCT USED FOR UNKNOWN INDICATION
     Dosage: 01 MG, ONCE DAILY
     Route: 048

REACTIONS (5)
  - Malignant neoplasm progression [Fatal]
  - Anaemia [Recovering/Resolving]
  - Back pain [Not Recovered/Not Resolved]
  - Urinary retention [Not Recovered/Not Resolved]
  - Haematuria [Recovering/Resolving]

NARRATIVE: CASE EVENT DATE: 20160119
